FAERS Safety Report 12821123 (Version 1)
Quarter: 2016Q4

REPORT INFORMATION
  Report Type: Report from Study
  Country: CA (occurrence: CA)
  Receive Date: 20161007
  Receipt Date: 20161007
  Transmission Date: 20170207
  Serious: Yes (Life-Threatening, Hospitalization, Other)
  Sender: FDA-Public Use
  Company Number: CA-ROCHE-783840

PATIENT
  Age: 63 Year
  Sex: Female
  Weight: 62 kg

DRUGS (3)
  1. BEVACIZUMAB [Suspect]
     Active Substance: BEVACIZUMAB
     Dosage: OVER 30-90 MINUTES ON DAYS 1 AND 15, ALSO RECEIVED ON 08/MAR/2010?LAST DOSE PRIOR TO SAE: 29/MAR/201
     Route: 042
     Dates: start: 20100208, end: 20101201
  2. BEVACIZUMAB [Suspect]
     Active Substance: BEVACIZUMAB
     Indication: CARCINOID TUMOUR
     Dosage: OVER 30-90 MIN ON DAYS 01 AND 15; CYCLE= 28 DAYS
     Route: 042
  3. TEMSIROLIMUS [Suspect]
     Active Substance: TEMSIROLIMUS
     Indication: CARCINOID TUMOUR
     Dosage: ON DAYS 01, 08, 15, 22; CYCLE= 28 DAYS, ALSO RECEIVED ON 08/FEB/2010 AND 08/MAR/2010?LAST DOSE PRIOR
     Route: 042
     Dates: start: 20100111, end: 20101201

REACTIONS (11)
  - Hyperglycaemia [Unknown]
  - Pyrexia [Unknown]
  - Hypoalbuminaemia [Unknown]
  - Muscular weakness [Unknown]
  - Hypertension [Unknown]
  - Lymphocyte count decreased [Unknown]
  - Fatigue [Unknown]
  - Infection [Unknown]
  - Chills [Unknown]
  - Blood alkaline phosphatase increased [Unknown]
  - Hypokalaemia [Unknown]

NARRATIVE: CASE EVENT DATE: 20100406
